FAERS Safety Report 8618154-X (Version None)
Quarter: 2012Q3

REPORT INFORMATION
  Report Type: 
  Country: None (occurrence: None)
  Receive Date: 20120824
  Receipt Date: 20120206
  Transmission Date: 20120928
  Serious: Yes (Other)
  Sender: FDA-Public Use
  Company Number: US-ASTRAZENECA-2012SE08075

PATIENT
  Age: 30697 Day
  Weight: 84.4 kg

DRUGS (1)
  1. SYMBICORT [Suspect]
     Indication: CHRONIC OBSTRUCTIVE PULMONARY DISEASE
     Dosage: 160 MCGS TWO PUFFS TWO TIMES A DAY
     Route: 055
     Dates: start: 20111101, end: 20111219

REACTIONS (2)
  - RASH [None]
  - URTICARIA [None]
